FAERS Safety Report 6885382-3 (Version None)
Quarter: 2010Q3

REPORT INFORMATION
  Report Type: 
  Country: None (occurrence: None)
  Receive Date: 20100729
  Receipt Date: 20080421
  Transmission Date: 20110219
  Serious: No
  Sender: FDA-Public Use
  Company Number: US-PFIZER INC-2007099626

PATIENT
  Sex: Female

DRUGS (6)
  1. CELEBREX [Suspect]
     Indication: MUSCULOSKELETAL PAIN
     Route: 048
     Dates: start: 20071105, end: 20071128
  2. VICODIN [Concomitant]
     Dosage: 6 EVERY 1 DAYS
  3. PAXIL [Concomitant]
  4. LOSARTAN POSTASSIUM [Concomitant]
  5. AMLODIPINE [Concomitant]
  6. DETROL LA [Concomitant]

REACTIONS (3)
  - IRRITABILITY [None]
  - RASH PRURITIC [None]
  - URTICARIA [None]
